FAERS Safety Report 7893456-3 (Version None)
Quarter: 2011Q4

REPORT INFORMATION
  Report Type: 
  Country: None (occurrence: None)
  Receive Date: 20111104
  Receipt Date: 20110923
  Transmission Date: 20120403
  Serious: Yes (Hospitalization)
  Sender: FDA-Public Use
  Company Number: FR-ROCHE-1003694

PATIENT
  Sex: Male

DRUGS (14)
  1. ENALAPRIL MALEATE [Concomitant]
  2. CORGARD [Concomitant]
  3. PREVISCAN [Concomitant]
  4. PREDNISONE [Concomitant]
  5. FLECAINIDE ACETATE [Concomitant]
  6. ASPIRIN [Concomitant]
     Route: 048
  7. HYDROCHLOROTHIAZIDE [Concomitant]
  8. MYCOPHENOLATE MOFETIL (CELLCEPT) [Suspect]
     Indication: PRODUCT USED FOR UNKNOWN INDICATION
     Route: 048
     Dates: start: 20110817, end: 20110827
  9. CACIT [Concomitant]
  10. NASONEX [Concomitant]
  11. BACTRIM [Concomitant]
  12. PANTOPRAZOLE [Concomitant]
  13. ATORVASTATIN CALCIUM [Concomitant]
  14. UVEDOSE [Concomitant]

REACTIONS (3)
  - AFFECTIVE DISORDER [None]
  - DEPRESSION [None]
  - DELIRIUM [None]
